FAERS Safety Report 9263399 (Version 1)
Quarter: 2013Q2

REPORT INFORMATION
  Report Type: Spontaneous
  Country: US (occurrence: None)
  Receive Date: 20130429
  Receipt Date: 20130429
  Transmission Date: 20140414
  Serious: Yes (Other)
  Sender: FDA-Public Use
  Company Number: None

PATIENT
  Age: 60 Year
  Sex: Female
  Weight: 107.96 kg

DRUGS (3)
  1. OMEPRAZOLE [Suspect]
     Dosage: 1 CAPSULE 2X A DAY 12X BY MOUTH
     Route: 048
     Dates: start: 20130409, end: 20130415
  2. CLARITHROMYCIN [Suspect]
     Dosage: 1 TABLET 2X A DAY X12 BY MOUTH
     Route: 048
     Dates: start: 20130409, end: 20130415
  3. AMOXICILLIN [Suspect]
     Dosage: 2 CAPSULES 2X A DAY
     Dates: start: 20130409, end: 20130415

REACTIONS (7)
  - Dizziness [None]
  - Extrasystoles [None]
  - Abdominal pain upper [None]
  - Myalgia [None]
  - Muscle spasms [None]
  - Muscle spasms [None]
  - Flatulence [None]
